FAERS Safety Report 10099523 (Version 1)
Quarter: 2014Q2

REPORT INFORMATION
  Report Type: Spontaneous
  Country: IT (occurrence: IT)
  Receive Date: 20140423
  Receipt Date: 20140423
  Transmission Date: 20141212
  Serious: Yes (Other)
  Sender: FDA-Public Use
  Company Number: IT-EISAI INC-E2020-13915-SPO-IT

PATIENT
  Age: 88 Year
  Sex: Female

DRUGS (1)
  1. DONEPEZIL [Suspect]
     Indication: PRODUCT USED FOR UNKNOWN INDICATION
     Dosage: UNNKOWN
     Route: 048

REACTIONS (3)
  - Delirium [Unknown]
  - Visual impairment [Unknown]
  - Decreased appetite [Unknown]
